FAERS Safety Report 8480765-2 (Version None)
Quarter: 2012Q2

REPORT INFORMATION
  Report Type: 
  Country: None (occurrence: None)
  Receive Date: 20120625
  Receipt Date: 20120612
  Transmission Date: 20120825
  Serious: Yes (Hospitalization)
  Sender: FDA-Public Use
  Company Number: 2012SP032419

PATIENT
  Age: 46 Year
  Sex: Male

DRUGS (5)
  1. PEGINTERFERON ALFA-2B [Suspect]
     Indication: HEPATITIS C
  2. SUBUTEX [Concomitant]
  3. REBETOL [Suspect]
     Indication: HEPATITIS C
  4. BENZODIAZEPINE [Concomitant]
  5. VICTRELIS [Suspect]
     Indication: HEPATITIS C

REACTIONS (5)
  - DISORIENTATION [None]
  - PYREXIA [None]
  - SOMNOLENCE [None]
  - OBSESSIVE-COMPULSIVE DISORDER [None]
  - CONFUSIONAL STATE [None]
